FAERS Safety Report 4634602-4 (Version None)
Quarter: 2005Q2

REPORT INFORMATION
  Report Type: 
  Country: None (occurrence: None)
  Receive Date: 20050413
  Receipt Date: 20050329
  Transmission Date: 20051028
  Serious: Yes (Life-Threatening, Hospitalization, Other)
  Sender: FDA-Public Use
  Company Number: 2005040328

PATIENT
  Age: 75 Year
  Sex: Female

DRUGS (3)
  1. NEURONTIN [Suspect]
     Indication: EPILEPSY
     Dosage: 1800 MG (600 MG, 3  IN 1 D), ORAL
     Route: 048
     Dates: start: 20040101
  2. ACETAMINOPHEN [Suspect]
     Indication: HEADACHE
     Dosage: (500 MG), ORAL
     Route: 048
     Dates: start: 20050224
  3. SERETIDE MITE                          (FLUTICASONE PROPIONATE, SALMET [Concomitant]
     Indication: ILL-DEFINED DISORDER
     Dosage: 500 MCG (2 IN 1 D), ORAL
     Route: 048
     Dates: start: 20041101

REACTIONS (10)
  - ALPHA 2 GLOBULIN INCREASED [None]
  - BLISTER [None]
  - CONJUNCTIVITIS [None]
  - DRUG INTERACTION [None]
  - ERYTHEMA MULTIFORME [None]
  - PRURIGO [None]
  - PRURITUS [None]
  - RASH PAPULAR [None]
  - STEVENS-JOHNSON SYNDROME [None]
  - TOXIC SKIN ERUPTION [None]
